FAERS Safety Report 15671104 (Version 1)
Quarter: 2018Q4

REPORT INFORMATION
  Report Type: Spontaneous
  Country: JP (occurrence: JP)
  Receive Date: 20181129
  Receipt Date: 20181129
  Transmission Date: 20190205
  Serious: Yes (Other)
  Sender: FDA-Public Use
  Company Number: JP-PFIZER INC-2017488768

PATIENT
  Age: 52 Year
  Sex: Female

DRUGS (1)
  1. CABASER 1.0MG [Suspect]
     Active Substance: CABERGOLINE
     Indication: GALACTORRHOEA
     Dosage: UNK
     Route: 048
     Dates: start: 201711, end: 201711

REACTIONS (3)
  - Nausea [Unknown]
  - Malaise [Unknown]
  - Myalgia [Unknown]

NARRATIVE: CASE EVENT DATE: 20171113
